FAERS Safety Report 9832947 (Version 1)
Quarter: 2014Q1

REPORT INFORMATION
  Report Type: Report from Study
  Country: CO (occurrence: CO)
  Receive Date: 20140121
  Receipt Date: 20140121
  Transmission Date: 20141002
  Serious: Yes (Death, Hospitalization)
  Sender: FDA-Public Use
  Company Number: CO-BRISTOL-MYERS SQUIBB COMPANY-20054581

PATIENT
  Age: 57 Year
  Sex: Female

DRUGS (1)
  1. IXEMPRA [Suspect]
     Dates: start: 20131209

REACTIONS (2)
  - Death [Fatal]
  - Yellow skin [Unknown]
